FAERS Safety Report 6384449-6 (Version None)
Quarter: 2009Q4

REPORT INFORMATION
  Report Type: 
  Country: None (occurrence: None)
  Receive Date: 20091001
  Receipt Date: 20090924
  Transmission Date: 20100525
  Serious: No
  Sender: FDA-Public Use
  Company Number: US-B.I. PHARMACEUTICALS,INC./RIDGEFIELD-2009-BP-11293BP

PATIENT
  Sex: Female

DRUGS (5)
  1. SPIRIVA [Suspect]
     Indication: ASTHMA
     Dosage: 18 MCG
     Route: 055
     Dates: start: 20090301, end: 20090801
  2. PROVENTIL-HFA [Concomitant]
     Indication: ASTHMA
     Route: 055
     Dates: start: 20060101
  3. XOPENEX [Concomitant]
     Indication: ASTHMA
     Route: 055
     Dates: start: 20060101
  4. NASONEX [Concomitant]
     Indication: MULTIPLE ALLERGIES
     Route: 045
     Dates: start: 19990101
  5. MIRENA [Concomitant]
     Indication: CONTRACEPTION
     Route: 015

REACTIONS (1)
  - DYSPNOEA [None]
